FAERS Safety Report 5008451-1 (Version None)
Quarter: 2006Q2

REPORT INFORMATION
  Report Type: 
  Country: None (occurrence: None)
  Receive Date: 20060522
  Receipt Date: 20060522
  Transmission Date: 20061013
  Serious: Yes (Hospitalization, Disabling)
  Sender: FDA-Public Use
  Company Number: None

PATIENT
  Age: 1 Year
  Sex: Male
  Weight: 11.3399 kg

DRUGS (1)
  1. PROTOPIC [Suspect]
     Dosage: WHOLE BODY 2X PER DAY SKIN
     Dates: start: 20020101, end: 20050101

REACTIONS (3)
  - DRUG HYPERSENSITIVITY [None]
  - MALAISE [None]
  - SKIN INFECTION [None]
